FAERS Safety Report 7070477-4 (Version None)
Quarter: 2010Q4

REPORT INFORMATION
  Report Type: 
  Country: None (occurrence: None)
  Receive Date: 20101028
  Receipt Date: 20101028
  Transmission Date: 20110411
  Serious: No
  Sender: FDA-Public Use
  Company Number: None

PATIENT
  Age: 48 Year
  Sex: Male
  Weight: 98.4306 kg

DRUGS (1)
  1. OXYCONTIN [Suspect]
     Indication: INTERVERTEBRAL DISC DEGENERATION
     Dosage: 1 TABLET EVERY 12 HOURS PO
     Route: 048
     Dates: start: 20031018, end: 20101027

REACTIONS (4)
  - DRUG WITHDRAWAL SYNDROME [None]
  - DYSPEPSIA [None]
  - MEDICATION RESIDUE [None]
  - PRODUCT FORMULATION ISSUE [None]
